FAERS Safety Report 5888492-2 (Version None)
Quarter: 2008Q3

REPORT INFORMATION
  Report Type: 
  Country: None (occurrence: None)
  Receive Date: 20080918
  Receipt Date: 20080915
  Transmission Date: 20090109
  Serious: Yes (Hospitalization)
  Sender: FDA-Public Use
  Company Number: US-GILEAD-2008-0018119

PATIENT
  Sex: Female
  Weight: 43.13 kg

DRUGS (9)
  1. LETAIRIS [Suspect]
     Indication: PULMONARY ARTERIAL HYPERTENSION
     Route: 048
  2. NORVASC [Concomitant]
     Route: 048
  3. ASPIRIN [Concomitant]
     Route: 048
  4. BONIVA [Concomitant]
     Route: 048
  5. PENICILLIN VK [Concomitant]
     Route: 048
  6. OXYGEN [Concomitant]
  7. RELAFEN [Concomitant]
     Route: 048
  8. NEXIUM [Concomitant]
     Route: 048
  9. MULTI-VITAMIN [Concomitant]
     Route: 048

REACTIONS (1)
  - PNEUMONIA [None]
